FAERS Safety Report 6300254-0 (Version None)
Quarter: 2009Q3

REPORT INFORMATION
  Report Type: 
  Country: None (occurrence: None)
  Receive Date: 20090806
  Receipt Date: 20090730
  Transmission Date: 20100115
  Serious: Yes (Other)
  Sender: FDA-Public Use
  Company Number: BR-JNJCH-2009020698

PATIENT
  Age: 69 Year
  Sex: Male
  Weight: 73 kg

DRUGS (7)
  1. COOL MINT LISTERINE [Suspect]
     Indication: DENTAL DISORDER PROPHYLAXIS
     Dosage: TEXT:UNSPECIFIED
     Route: 048
     Dates: start: 20090728, end: 20090729
  2. BUFERIN [Concomitant]
     Indication: CARDIAC DISORDER
     Dosage: TEXT:81 MG (FREQUENCY UNSPECIFIED)
     Route: 048
  3. AMLODIPINE [Concomitant]
     Indication: CARDIAC DISORDER
     Dosage: TEXT:5 MG (FREQUENCY UNSPECIFIED)
     Route: 065
  4. NIMODIPINE [Concomitant]
     Indication: CARDIAC DISORDER
     Dosage: TEXT:UNSPECIFIED
     Route: 065
  5. CARVEDILOL [Concomitant]
     Indication: CARDIAC DISORDER
     Dosage: TEXT:UNSPECIFIED
     Route: 065
  6. CRESTOR [Concomitant]
     Indication: CARDIAC DISORDER
     Dosage: TEXT:10 MG (FREQUENCY UNSPECIFIED)
     Route: 065
  7. METFORMIN HYDROCHLORIDE [Concomitant]
     Indication: CARDIAC DISORDER
     Dosage: TEXT:500 MG (FREQUENCY UNSPECIFIED)
     Route: 065

REACTIONS (2)
  - APPLICATION SITE BURN [None]
  - WOUND [None]
